FAERS Safety Report 21644569 (Version 2)
Quarter: 2022Q4

REPORT INFORMATION
  Report Type: Report from Study
  Country: US (occurrence: US)
  Receive Date: 20221125
  Receipt Date: 20221214
  Transmission Date: 20230112
  Serious: No
  Sender: FDA-Public Use
  Company Number: US-ABBVIE-4214551

PATIENT
  Sex: Female

DRUGS (3)
  1. HUMIRA [Suspect]
     Active Substance: ADALIMUMAB
     Indication: Rheumatoid arthritis
     Dosage: CITRATE FREE
     Route: 058
  2. PFIZER-BIONTECH COVID-19 VACCINE [Concomitant]
     Active Substance: TOZINAMERAN
     Indication: COVID-19 immunisation
     Dosage: BOOSTER VACCINE, ONCE
     Route: 030
     Dates: start: 20220201, end: 20220201
  3. PFIZER-BIONTECH COVID-19 VACCINE [Concomitant]
     Active Substance: TOZINAMERAN
     Indication: COVID-19 immunisation
     Dosage: ONCE
     Route: 030

REACTIONS (7)
  - Back disorder [Unknown]
  - Musculoskeletal disorder [Recovering/Resolving]
  - Arthralgia [Unknown]
  - Fatigue [Unknown]
  - Sensory disturbance [Recovering/Resolving]
  - Therapeutic product effect delayed [Unknown]
  - Decreased appetite [Recovering/Resolving]
